FAERS Safety Report 7585448-9 (Version None)
Quarter: 2011Q2

REPORT INFORMATION
  Report Type: 
  Country: None (occurrence: None)
  Receive Date: 20110628
  Receipt Date: 20110628
  Transmission Date: 20111010
  Serious: No
  Sender: FDA-Public Use
  Company Number: None

PATIENT
  Age: 9 Year
  Sex: Female
  Weight: 35.3806 kg

DRUGS (1)
  1. CIPRO [Suspect]
     Indication: EAR INFECTION BACTERIAL
     Dosage: 250MG 2XS A DAY
     Dates: start: 20110605, end: 20110615

REACTIONS (1)
  - ALOPECIA [None]
